FAERS Safety Report 24632612 (Version 2)
Quarter: 2024Q4

REPORT INFORMATION
  Report Type: Report from Study
  Country: US (occurrence: US)
  Receive Date: 20241118
  Receipt Date: 20241210
  Transmission Date: 20250115
  Serious: Yes (Other)
  Sender: ALEXION PHARMACEUTICALS
  Company Number: US-AstraZeneca-CH-00743610A

PATIENT
  Weight: 88.435 kg

DRUGS (12)
  1. ULTOMIRIS [Suspect]
     Active Substance: RAVULIZUMAB-CWVZ
     Indication: Myasthenia gravis
     Dosage: 3300 MILLIGRAM, Q8W
  2. ULTOMIRIS [Suspect]
     Active Substance: RAVULIZUMAB-CWVZ
     Dosage: 3300 MILLIGRAM, Q8W
     Route: 042
  3. ULTOMIRIS [Suspect]
     Active Substance: RAVULIZUMAB-CWVZ
     Dosage: 3300 MILLIGRAM, Q8W
  4. ULTOMIRIS [Suspect]
     Active Substance: RAVULIZUMAB-CWVZ
     Dosage: 3300 MILLIGRAM, Q8W
     Route: 042
  5. MESTINON [Concomitant]
     Active Substance: PYRIDOSTIGMINE BROMIDE
     Dosage: 60 MILLIGRAM, 5 TIMES A DAY
  6. MESTINON [Concomitant]
     Active Substance: PYRIDOSTIGMINE BROMIDE
     Dosage: 60 MILLIGRAM, 5 TIMES A DAY
     Route: 048
  7. MESTINON [Concomitant]
     Active Substance: PYRIDOSTIGMINE BROMIDE
     Dosage: 60 MILLIGRAM, 5 TIMES A DAY
  8. MESTINON [Concomitant]
     Active Substance: PYRIDOSTIGMINE BROMIDE
     Dosage: 60 MILLIGRAM, 5 TIMES A DAY
     Route: 048
  9. IMURAN [Concomitant]
     Active Substance: AZATHIOPRINE
     Indication: Myasthenia gravis
     Dosage: UNK, QID, FOR 90 DAYS
  10. IMURAN [Concomitant]
     Active Substance: AZATHIOPRINE
     Dosage: UNK, QID, FOR 90 DAYS
     Route: 048
  11. IMURAN [Concomitant]
     Active Substance: AZATHIOPRINE
     Dosage: UNK, QID, FOR 90 DAYS
  12. IMURAN [Concomitant]
     Active Substance: AZATHIOPRINE
     Dosage: UNK, QID, FOR 90 DAYS
     Route: 048

REACTIONS (4)
  - Hypothyroidism [Unknown]
  - Dyspnoea [Unknown]
  - Eyelid ptosis [Unknown]
  - Diplopia [Unknown]
